FAERS Safety Report 4589581-5 (Version None)
Quarter: 2005Q1

REPORT INFORMATION
  Report Type: 
  Country: None (occurrence: None)
  Receive Date: 20050216
  Receipt Date: 20050201
  Transmission Date: 20050727
  Serious: Yes (Life-Threatening)
  Sender: FDA-Public Use
  Company Number: ENTC2005-0033

PATIENT
  Age: 75 Year
  Sex: Female

DRUGS (14)
  1. STALEVO 100 [Suspect]
     Indication: PARKINSON'S DISEASE
     Dosage: 100/25/200 X 4 ORAL
     Route: 048
     Dates: start: 20050112, end: 20050127
  2. MADOPAR DEPOT [Concomitant]
  3. MADOPAR [Concomitant]
  4. SIFROL [Concomitant]
  5. COMTESS (ENTACAPONE) [Concomitant]
  6. AMANTADINE HCL [Concomitant]
  7. ASS 100 [Concomitant]
  8. NEXIUM [Concomitant]
  9. LISINOPRIL [Concomitant]
  10. HCT [Concomitant]
  11. ACIMETHIN [Concomitant]
  12. COTRIM D.S. [Concomitant]
  13. ZOPICLON [Concomitant]
  14. FERROUS SULFATE TAB [Concomitant]

REACTIONS (1)
  - HYPOGLYCAEMIA [None]
